FAERS Safety Report 23264582 (Version 2)
Quarter: 2024Q1

REPORT INFORMATION
  Report Type: Report from Study
  Country: US (occurrence: US)
  Receive Date: 20231205
  Receipt Date: 20240104
  Transmission Date: 20240410
  Serious: Yes (Hospitalization, Other)
  Sender: FDA-Public Use
  Company Number: US-ABBVIE-5520689

PATIENT
  Sex: Female

DRUGS (2)
  1. HUMIRA [Suspect]
     Active Substance: ADALIMUMAB
     Indication: Rheumatoid arthritis
     Dosage: FORM STRENGTH 40 MILLIGRAM
     Route: 058
     Dates: start: 20221102, end: 20221107
  2. HUMIRA [Suspect]
     Active Substance: ADALIMUMAB
     Dosage: FORM STRENGTH 40 MILLIGRAM
     Route: 058
     Dates: end: 2023

REACTIONS (6)
  - Nephrolithiasis [Recovering/Resolving]
  - Oxygen saturation abnormal [Unknown]
  - Respiratory disorder [Not Recovered/Not Resolved]
  - Middle ear effusion [Recovering/Resolving]
  - Lung hypoinflation [Unknown]
  - Procedural complication [Unknown]

NARRATIVE: CASE EVENT DATE: 20230101
